FAERS Safety Report 20344912 (Version 1)
Quarter: 2022Q1

REPORT INFORMATION
  Report Type: Report from Study
  Country: US (occurrence: US)
  Receive Date: 20220118
  Receipt Date: 20220118
  Transmission Date: 20220423
  Serious: Yes (Other)
  Sender: FDA-Public Use
  Company Number: US-JNJFOC-20220113157

PATIENT
  Age: 77 Year
  Sex: Male

DRUGS (3)
  1. INVEGA SUSTENNA [Suspect]
     Active Substance: PALIPERIDONE PALMITATE
     Indication: Anxiety
     Dosage: HE SAID HE STARTED TREATMENT WITH THE DRUG ABOUT 3 YEARS AGO.
     Route: 030
     Dates: start: 2019
  2. INVEGA SUSTENNA [Suspect]
     Active Substance: PALIPERIDONE PALMITATE
  3. INVEGA SUSTENNA [Suspect]
     Active Substance: PALIPERIDONE PALMITATE

REACTIONS (11)
  - Lymphoma [Unknown]
  - Hypertension [Unknown]
  - Cardiac disorder [Unknown]
  - Arthritis [Unknown]
  - Somnolence [Unknown]
  - Dizziness [Unknown]
  - Restlessness [Unknown]
  - Dyskinesia [Unknown]
  - Musculoskeletal stiffness [Unknown]
  - Product use in unapproved indication [Unknown]
  - Off label use [Unknown]
